FAERS Safety Report 4510053-8 (Version None)
Quarter: 2004Q4

REPORT INFORMATION
  Report Type: 
  Country: None (occurrence: None)
  Receive Date: 20041124
  Receipt Date: 20031106
  Transmission Date: 20050328
  Serious: Yes (Hospitalization, Other)
  Sender: FDA-Public Use
  Company Number: PHHO2003JP14420

PATIENT
  Age: 46 Year
  Sex: Female
  Weight: 63 kg

DRUGS (15)
  1. GLEEVEC [Suspect]
     Indication: CHRONIC MYELOID LEUKAEMIA
     Dosage: NO TREATMENT
     Dates: start: 20030712, end: 20030715
  2. GLEEVEC [Suspect]
     Dosage: 400 MG, QD
     Route: 048
     Dates: start: 20030716, end: 20040105
  3. GLEEVEC [Suspect]
     Dosage: 400 MG, QD
     Route: 048
     Dates: start: 20030108, end: 20030129
  4. GLEEVEC [Suspect]
     Dosage: 200 MG, QD
     Route: 048
     Dates: start: 20030130, end: 20030205
  5. GLEEVEC [Suspect]
     Dosage: UNK, NO TREATMENT
     Dates: start: 20030206, end: 20030226
  6. GLEEVEC [Suspect]
     Dosage: 300 MG, QD
     Route: 048
     Dates: start: 20030227, end: 20030312
  7. GLEEVEC [Suspect]
     Dosage: UNK, NO TREATMENT
     Dates: start: 20030313, end: 20030409
  8. GLEEVEC [Suspect]
     Dosage: 300 MG, QD
     Route: 048
     Dates: start: 20030410, end: 20030423
  9. GLEEVEC [Suspect]
     Dosage: UNK, NO TREATMENT
     Dates: start: 20030424, end: 20030520
  10. GLEEVEC [Suspect]
     Dosage: 300 MG, QD
     Route: 048
     Dates: start: 20030521, end: 20030617
  11. GLEEVEC [Suspect]
     Dosage: 200 MG, QD
     Route: 048
     Dates: start: 20030618, end: 20030624
  12. GLEEVEC [Suspect]
     Dosage: 400 MG, QD
     Dates: start: 20030625, end: 20030711
  13. CYTARABINE [Concomitant]
  14. ONCOVIN [Concomitant]
  15. PREDONINE [Concomitant]

REACTIONS (12)
  - BLAST CELL COUNT INCREASED [None]
  - BLAST CELLS PRESENT [None]
  - EOSINOPHIL COUNT INCREASED [None]
  - HAEMATOCRIT DECREASED [None]
  - HAEMOGLOBIN DECREASED [None]
  - LYMPHOCYTE COUNT DECREASED [None]
  - MALIGNANT NEOPLASM PROGRESSION [None]
  - NEOPLASM MALIGNANT [None]
  - NEUTROPHIL COUNT DECREASED [None]
  - PLATELET COUNT DECREASED [None]
  - RED BLOOD CELL COUNT DECREASED [None]
  - WHITE BLOOD CELL COUNT INCREASED [None]
